FAERS Safety Report 6707071-8 (Version None)
Quarter: 2010Q2

REPORT INFORMATION
  Report Type: 
  Country: None (occurrence: None)
  Receive Date: 20100429
  Receipt Date: 20100416
  Transmission Date: 20101027
  Serious: Yes (Hospitalization)
  Sender: FDA-Public Use
  Company Number: 2010-1291

PATIENT
  Age: 67 Year
  Sex: Male
  Weight: 86 kg

DRUGS (8)
  1. APOKYN [Suspect]
     Indication: PARKINSON'S DISEASE
     Dosage: 0.2 ML GIVEN 1-3 TIMES/DAY (0.2 ML, 1-3 TIMES/DAY)
     Dates: start: 20090601, end: 20090701
  2. APOKYN [Suspect]
     Indication: PARKINSON'S DISEASE
     Dosage: 0.2 ML GIVEN 1-3 TIMES/DAY (0.2 ML, 1-3 TIMES/DAY)
     Dates: start: 20090901, end: 20100331
  3. TIGAN [Concomitant]
  4. LEXAPRO [Concomitant]
  5. EXELON [Concomitant]
  6. MIDODRINE HYDROCHLORIDE [Concomitant]
  7. KLONOPIN [Concomitant]
  8. FINASTERIDE [Concomitant]

REACTIONS (2)
  - CONFUSIONAL STATE [None]
  - PNEUMONIA [None]
